FAERS Safety Report 20907831 (Version 1)
Quarter: 2022Q2

REPORT INFORMATION
  Report Type: Spontaneous
  Country: US (occurrence: US)
  Receive Date: 20220602
  Receipt Date: 20220602
  Transmission Date: 20220721
  Serious: Yes (Hospitalization, Other)
  Sender: FDA-Public Use
  Company Number: US-ALLERGAN-2217858US

PATIENT
  Sex: Female

DRUGS (2)
  1. UBRELVY [Suspect]
     Active Substance: UBROGEPANT
     Indication: Product used for unknown indication
     Dosage: 100 MILLIGRAM
  2. MODERNA COVID-19 VACCINE [Suspect]
     Active Substance: ELASOMERAN
     Indication: COVID-19 immunisation
     Dosage: UNK
     Dates: start: 20210612, end: 20210612

REACTIONS (6)
  - Renal disorder [Unknown]
  - Blood disorder [Unknown]
  - Nephrotic syndrome [Unknown]
  - Autoimmune neutropenia [Unknown]
  - Cerebrovascular accident [Unknown]
  - Thrombosis [Unknown]
